FAERS Safety Report 8515783-9 (Version None)
Quarter: 2012Q3

REPORT INFORMATION
  Report Type: 
  Country: None (occurrence: None)
  Receive Date: 20120717
  Receipt Date: 20120706
  Transmission Date: 20120928
  Serious: Yes (Death)
  Sender: FDA-Public Use
  Company Number: US-CUBIST-2012S1000430

PATIENT
  Age: 53 Year
  Sex: Female
  Weight: 52.1 kg

DRUGS (9)
  1. NICOTINE [Concomitant]
     Indication: SMOKING CESSATION THERAPY
     Route: 062
     Dates: start: 20090328, end: 20090428
  2. CUBICIN [Suspect]
     Indication: STAPHYLOCOCCAL BACTERAEMIA
     Route: 042
     Dates: start: 20090330, end: 20090428
  3. FUROSEMIDE [Concomitant]
     Indication: FLUID OVERLOAD
     Dates: start: 20090419, end: 20090428
  4. METHADONE HCL [Concomitant]
     Indication: DEPENDENCE
     Route: 048
     Dates: start: 20090414, end: 20090428
  5. ALBUTEROL [Concomitant]
     Indication: ASTHMA
     Route: 055
     Dates: start: 20090417, end: 20090428
  6. METHADONE HCL [Concomitant]
     Indication: PAIN
     Route: 048
     Dates: start: 20090414, end: 20090428
  7. CUBICIN [Suspect]
     Route: 042
     Dates: start: 20090330, end: 20090428
  8. CEFEPIME [Concomitant]
     Indication: EVIDENCE BASED TREATMENT
     Route: 042
     Dates: start: 20090417, end: 20090428
  9. HEPARIN [Concomitant]
     Indication: THROMBOSIS PROPHYLAXIS
     Dates: start: 20090422, end: 20090428

REACTIONS (1)
  - ENDOCARDITIS [None]
